FAERS Safety Report 6844511-8 (Version None)
Quarter: 2010Q3

REPORT INFORMATION
  Report Type: 
  Country: None (occurrence: None)
  Receive Date: 20100715
  Receipt Date: 20100714
  Transmission Date: 20110219
  Serious: Yes (Death, Other)
  Sender: FDA-Public Use
  Company Number: CHPA2010US11489

PATIENT
  Age: 68 Year
  Sex: Male

DRUGS (1)
  1. EXCEDRIN ES BACK + BODY (NCH) [Suspect]
     Indication: BACK PAIN
     Dosage: UNK, UNK
     Route: 048

REACTIONS (5)
  - COMA [None]
  - HYPERCALCAEMIA [None]
  - LEUKAEMIA [None]
  - NEPHROPATHY [None]
  - RENAL FAILURE [None]
